FAERS Safety Report 26157901 (Version 1)
Quarter: 2025Q4

REPORT INFORMATION
  Report Type: Spontaneous
  Country: US (occurrence: None)
  Receive Date: 20251215
  Receipt Date: 20251215
  Transmission Date: 20260117
  Serious: Yes (Hospitalization)
  Sender: FDA-CTU
  Company Number: None

PATIENT
  Sex: Male

DRUGS (11)
  1. YESINTEK [Suspect]
     Active Substance: USTEKINUMAB-KFCE
     Indication: Crohn^s disease
     Dosage: OTHER FREQUENCY : EVERY 8 WEEKS;?FREQ: INJECT 1 SYRINGE UNDER THE SKIN EVERY 8 WEEKS SUBSTITUTED/INTERCHANGEABLE BIOLOGICAL PRODUCT ?FOR STELARA
     Route: 058
     Dates: start: 20250708
  2. ALLOPURINOL [Concomitant]
     Active Substance: ALLOPURINOL
  3. ALPHAGAN P SOL0.1% [Concomitant]
  4. AMLODIPINE [Concomitant]
     Active Substance: AMLODIPINE BESYLATE
  5. ASPIRIN CHW 81MG [Concomitant]
  6. ATORVASTATIN [Concomitant]
     Active Substance: ATORVASTATIN
  7. CLOPIDOGREL [Concomitant]
     Active Substance: CLOPIDOGREL BISULFATE
  8. CYANOCOBALAM INJ 1000MCG [Concomitant]
  9. FEROSUL TAB 325MG [Concomitant]
  10. LOSARTAN POT TAB 25MG [Concomitant]
  11. METOPROL sue TAB 100MG ER [Concomitant]

REACTIONS (1)
  - Therapy change [None]
